FAERS Safety Report 4310527-9 (Version None)
Quarter: 2004Q1

REPORT INFORMATION
  Report Type: 
  Country: None (occurrence: None)
  Receive Date: 20040303
  Receipt Date: 20031201
  Transmission Date: 20041129
  Serious: No
  Sender: FDA-Public Use
  Company Number: US-GLAXOSMITHKLINE-A0441482A

PATIENT
  Age: 43 Year
  Sex: Female
  Weight: 57.3 kg

DRUGS (2)
  1. WELLBUTRIN [Suspect]
     Indication: DEPRESSION
     Dosage: 100MG TWICE PER DAY
     Route: 048
     Dates: start: 20030601, end: 20030701
  2. MINOCYCLINE HCL [Concomitant]
     Indication: ACNE
     Dosage: 100MG TWICE PER DAY
     Route: 048

REACTIONS (1)
  - ARTHRITIS [None]
